FAERS Safety Report 7347393-3 (Version None)
Quarter: 2011Q1

REPORT INFORMATION
  Report Type: 
  Country: None (occurrence: None)
  Receive Date: 20110311
  Receipt Date: 20110301
  Transmission Date: 20110831
  Serious: Yes (Other)
  Sender: FDA-Public Use
  Company Number: US-WATSON-2011-03035

PATIENT
  Sex: Female

DRUGS (2)
  1. PROGESTERONE IN OIL INJ [Suspect]
     Indication: UTERINE HAEMORRHAGE
     Dosage: UNK
     Route: 048
  2. TRIAZOLAM (WATSON LABORATORIES) [Suspect]
     Indication: INSOMNIA
     Dosage: UNK
     Route: 048

REACTIONS (3)
  - DRUG INTERACTION [None]
  - DRUG EFFECT PROLONGED [None]
  - DRUG EFFECT DELAYED [None]
